FAERS Safety Report 13566936 (Version 3)
Quarter: 2017Q2

REPORT INFORMATION
  Report Type: Report from Study
  Country: US (occurrence: US)
  Receive Date: 20170522
  Receipt Date: 20170609
  Transmission Date: 20170830
  Serious: No
  Sender: FDA-Public Use
  Company Number: US-AMGEN-USASL2017076153

PATIENT
  Age: 74 Year
  Sex: Female

DRUGS (2)
  1. ENBREL [Suspect]
     Active Substance: ETANERCEPT
     Dosage: UNK
     Route: 065
  2. ENBREL [Suspect]
     Active Substance: ETANERCEPT
     Indication: RHEUMATOID ARTHRITIS
     Dosage: UNK
     Route: 065

REACTIONS (13)
  - Adverse drug reaction [Unknown]
  - Dry throat [Unknown]
  - Dyspnoea [Unknown]
  - Heart rate increased [Unknown]
  - Swelling [Unknown]
  - Pharyngeal oedema [Unknown]
  - Rhinorrhoea [Unknown]
  - Drug effect incomplete [Unknown]
  - Rash generalised [Unknown]
  - Urinary tract infection [Unknown]
  - Headache [Unknown]
  - Injection site rash [Unknown]
  - Pain in jaw [Unknown]
